FAERS Safety Report 21649972 (Version 1)
Quarter: 2022Q4

REPORT INFORMATION
  Report Type: Report from Study
  Country: US (occurrence: US)
  Receive Date: 20221128
  Receipt Date: 20221128
  Transmission Date: 20230112
  Serious: No
  Sender: FDA-Public Use
  Company Number: US-ABBVIE-4184825

PATIENT
  Sex: Male

DRUGS (4)
  1. HUMIRA [Suspect]
     Active Substance: ADALIMUMAB
     Indication: Crohn^s disease
     Route: 058
  2. Moderna covid-19 vaccination [Concomitant]
     Indication: COVID-19 immunisation
     Dosage: 1ST DOSE ?ONCE
     Route: 030
     Dates: start: 20210501, end: 20210501
  3. Moderna covid-19 vaccination [Concomitant]
     Indication: COVID-19 immunisation
     Dosage: 2ND DOSE ?ONCE
     Route: 030
     Dates: start: 20210530, end: 20210530
  4. Moderna covid-19 vaccination [Concomitant]
     Indication: COVID-19 immunisation
     Dosage: 3RD BOOSTER DOSE ?ONCE
     Route: 030
     Dates: start: 20210610, end: 20210610

REACTIONS (1)
  - Memory impairment [Unknown]
